FAERS Safety Report 18796806 (Version 1)
Quarter: 2021Q1

REPORT INFORMATION
  Report Type: Spontaneous
  Country: TR (occurrence: TR)
  Receive Date: 20210127
  Receipt Date: 20210127
  Transmission Date: 20210419
  Serious: Yes (Death)
  Sender: FDA-Public Use
  Company Number: TR-CELLTRION INC.-2021TR000955

PATIENT

DRUGS (2)
  1. METHYLPREDNISOLONE. [Concomitant]
     Active Substance: METHYLPREDNISOLONE
     Indication: IMMUNE-MEDIATED ENTEROCOLITIS
     Dosage: 1 MG/KG/DAY
  2. INFLIXIMAB (UNKNOWN) [Suspect]
     Active Substance: INFLIXIMAB
     Indication: IMMUNE-MEDIATED ENTEROCOLITIS
     Dosage: 5 MG/KG

REACTIONS (3)
  - Septic shock [Fatal]
  - Off label use [Unknown]
  - Drug resistance [Unknown]
